FAERS Safety Report 4368839-9 (Version None)
Quarter: 2004Q2

REPORT INFORMATION
  Report Type: 
  Country: None (occurrence: None)
  Receive Date: 20040525
  Receipt Date: 20040512
  Transmission Date: 20050107
  Serious: Yes (Death)
  Sender: FDA-Public Use
  Company Number: US-JNJFOC-20040503309

PATIENT
  Age: 47 Year
  Sex: Male
  Weight: 60.5 kg

DRUGS (7)
  1. TOPAMAX [Suspect]
     Indication: MIGRAINE PROPHYLAXIS
     Dosage: 25 MG, 1 IN 1 DAY, ORAL
     Route: 048
     Dates: start: 20040404, end: 20040410
  2. TOPAMAX [Suspect]
     Indication: NEUROPATHIC PAIN
     Dosage: 25 MG, 1 IN 1 DAY, ORAL
     Route: 048
     Dates: start: 20040404, end: 20040410
  3. KEPPRA [Suspect]
     Indication: CONVULSION
     Dosage: 500 MG, 2 IN 1 DAY, ORAL
     Route: 048
     Dates: start: 20030905, end: 20040410
  4. FENTANYL [Concomitant]
  5. PHENERGAN [Concomitant]
  6. DIFLUNISAL [Concomitant]
  7. MAXALT [Concomitant]

REACTIONS (2)
  - COMPLETED SUICIDE [None]
  - GUN SHOT WOUND [None]
